FAERS Safety Report 9022287 (Version 1)
Quarter: 2013Q1

REPORT INFORMATION
  Report Type: Spontaneous
  Country: FR (occurrence: FR)
  Receive Date: 20130118
  Receipt Date: 20130118
  Transmission Date: 20140127
  Serious: Yes (Hospitalization)
  Sender: FDA-Public Use
  Company Number: PHHY2013FR004263

PATIENT
  Sex: Male

DRUGS (12)
  1. NEORAL [Suspect]
     Indication: RENAL TRANSPLANT
     Dosage: 50 MG, BID
  2. COLCHICINE OPOCALCIUM [Suspect]
     Indication: GOUT
     Dosage: 1 MG, QD
     Route: 048
     Dates: start: 201109, end: 20120727
  3. IMUREL [Suspect]
     Indication: RENAL TRANSPLANT
     Route: 048
     Dates: end: 20120727
  4. PREVISCAN [Concomitant]
  5. EUPANTOL [Concomitant]
  6. SOLUPRED [Concomitant]
  7. CORDARONE [Concomitant]
  8. XATRAL [Concomitant]
  9. TEMERIT [Concomitant]
  10. FORLAX [Concomitant]
  11. LASILIX [Concomitant]
  12. GUTRON [Concomitant]

REACTIONS (1)
  - Agranulocytosis [Recovered/Resolved]
